FAERS Safety Report 24361170 (Version 1)
Quarter: 2024Q3

REPORT INFORMATION
  Report Type: Spontaneous
  Country: CN (occurrence: CN)
  Receive Date: 20240925
  Receipt Date: 20240925
  Transmission Date: 20241017
  Serious: Yes (Hospitalization)
  Sender: JOHNSON AND JOHNSON
  Company Number: CN-JNJFOC-20240954448

PATIENT
  Age: 53 Year
  Sex: Male
  Weight: 52 kg

DRUGS (5)
  1. CHILDRENS MOTRIN [Suspect]
     Active Substance: IBUPROFEN
     Indication: Pyrexia
     Dosage: 10 ML ON 25-AUG-2024, 27-AUG, 28-AUG, 30-AUG, 31-AUG AND 01-SEP-2024
     Route: 048
     Dates: start: 20240825, end: 20240825
  2. CHILDRENS MOTRIN [Suspect]
     Active Substance: IBUPROFEN
     Indication: Lung abscess
     Dosage: 10 ML ON 25-AUG-2024, 27-AUG, 28-AUG, 30-AUG, 31-AUG AND 01-SEP-2024
     Route: 048
     Dates: start: 20240827, end: 20240828
  3. CHILDRENS MOTRIN [Suspect]
     Active Substance: IBUPROFEN
     Dosage: 10 ML ON 25-AUG-2024, 27-AUG, 28-AUG, 30-AUG, 31-AUG AND 01-SEP-2024
     Route: 048
     Dates: start: 20240830, end: 20240901
  4. AMINOPHENAZONE BARBITAL [Suspect]
     Active Substance: AMINOPHENAZONE BARBITAL
     Indication: Antipyresis
     Dosage: 2 ML FOR ANTIPYRETIC TREATMENT ON 30-AUG AND 02-SEP-2024
     Route: 030
     Dates: start: 20240830, end: 20240830
  5. AMINOPHENAZONE BARBITAL [Suspect]
     Active Substance: AMINOPHENAZONE BARBITAL
     Dosage: 2 ML FOR ANTIPYRETIC TREATMENT ON 30-AUG AND 02-SEP-2024
     Route: 030
     Dates: start: 20240902, end: 20240902

REACTIONS (2)
  - Haemolytic anaemia [Recovering/Resolving]
  - Product use issue [Recovering/Resolving]

NARRATIVE: CASE EVENT DATE: 20240825
